FAERS Safety Report 21075394 (Version 2)
Quarter: 2022Q3

REPORT INFORMATION
  Report Type: Spontaneous
  Country: US (occurrence: US)
  Receive Date: 20220713
  Receipt Date: 20220722
  Transmission Date: 20221026
  Serious: Yes (Hospitalization, Other)
  Sender: FDA-Public Use
  Company Number: US-Accord-268371

PATIENT
  Age: 64 Year
  Sex: Male

DRUGS (2)
  1. CISPLATIN [Suspect]
     Active Substance: CISPLATIN
     Indication: Metastases to lung
     Dosage: 100 MG/M2  OVER 2 HOURS ON DAY 1
  2. DOXORUBICIN [Suspect]
     Active Substance: DOXORUBICIN
     Indication: Metastases to lung
     Dosage: 25 MG/M2 ) OVER 4 HOURS ON DAYS 1 THROUGH 3

REACTIONS (5)
  - Acute kidney injury [Recovered/Resolved]
  - Respiratory failure [Recovering/Resolving]
  - Hypervolaemia [Not Recovered/Not Resolved]
  - Off label use [Unknown]
  - Escherichia bacteraemia [Recovered/Resolved]
